FAERS Safety Report 6441071-0 (Version None)
Quarter: 2009Q4

REPORT INFORMATION
  Report Type: 
  Country: None (occurrence: None)
  Receive Date: 20091116
  Receipt Date: 20091104
  Transmission Date: 20100525
  Serious: Yes (Other)
  Sender: FDA-Public Use
  Company Number: US-NOVOPROD-291092

PATIENT
  Sex: Female
  Weight: 72.562 kg

DRUGS (1)
  1. LEVEMIR [Suspect]
     Indication: TYPE 2 DIABETES MELLITUS
     Dosage: 10 IU, QD
     Route: 058
     Dates: start: 20090820

REACTIONS (2)
  - DRUG INEFFECTIVE [None]
  - HEPATIC STEATOSIS [None]
